FAERS Safety Report 23278352 (Version 1)
Quarter: 2023Q4

REPORT INFORMATION
  Report Type: Other
  Country: None (occurrence: IT)
  Receive Date: 20231208
  Receipt Date: 20231208
  Transmission Date: 20240110
  Serious: Yes (Death)
  Sender: FDA-Public Use
  Company Number: IT-B.Braun Medical Inc.-2149152

PATIENT
  Age: 76 Year

DRUGS (1)
  1. HEPARIN SODIUM IN DEXTROSE [Suspect]
     Active Substance: HEPARIN SODIUM

REACTIONS (4)
  - Epistaxis [None]
  - Mouth haemorrhage [None]
  - Disseminated intravascular coagulation [None]
  - Overdose [None]
